FAERS Safety Report 9496826 (Version 1)
Quarter: 2013Q3

REPORT INFORMATION
  Report Type: Spontaneous
  Country: US (occurrence: None)
  Receive Date: 20130903
  Receipt Date: 20130903
  Transmission Date: 20140515
  Serious: Yes (Life-Threatening, Hospitalization, Disabling)
  Sender: FDA-Public Use
  Company Number: None

PATIENT
  Age: 79 Year
  Sex: Female
  Weight: 99.79 kg

DRUGS (6)
  1. EXTRA STRENGTH TYLENOL [Suspect]
     Indication: PAIN
     Dates: start: 20130315, end: 20130315
  2. EXTRA STRENGTH TYLENOL [Suspect]
     Indication: FIBROMYALGIA
     Dates: start: 20130315, end: 20130315
  3. EXTRA STRENGTH TYLENOL [Suspect]
     Indication: ARTHRITIS
     Dates: start: 20130315, end: 20130315
  4. GABAPENTIN [Concomitant]
  5. WARFARIN [Concomitant]
  6. KLONOPIN [Concomitant]

REACTIONS (10)
  - Pyrexia [None]
  - Chills [None]
  - Thinking abnormal [None]
  - Influenza [None]
  - White blood cell count decreased [None]
  - Malaise [None]
  - Dyspnoea [None]
  - Pulmonary embolism [None]
  - Atrial fibrillation [None]
  - Neutropenia [None]
